FAERS Safety Report 4525031-2 (Version None)
Quarter: 2004Q4

REPORT INFORMATION
  Report Type: 
  Country: None (occurrence: None)
  Receive Date: 20041210
  Receipt Date: 20041129
  Transmission Date: 20050328
  Serious: Yes (Other)
  Sender: FDA-Public Use
  Company Number: 2004091922

PATIENT
  Age: 66 Year
  Sex: Female
  Weight: 68.0396 kg

DRUGS (3)
  1. SUDAFED 12 HOUR [Suspect]
     Indication: SINUS CONGESTION
     Dosage: 1-4 TABLETS QD, ORAL
     Route: 048
     Dates: start: 20041103, end: 20041106
  2. LOTREL [Concomitant]
  3. RISEDRONATE SODIUM (RISEDRONATE SODIUM) [Concomitant]

REACTIONS (1)
  - DRUG INEFFECTIVE [None]
